FAERS Safety Report 8409888-0 (Version None)
Quarter: 2012Q2

REPORT INFORMATION
  Report Type: 
  Country: None (occurrence: None)
  Receive Date: 20120605
  Receipt Date: 20120524
  Transmission Date: 20120825
  Serious: Yes (Other)
  Sender: FDA-Public Use
  Company Number: CA-JNJFOC-20120519053

PATIENT
  Sex: Female
  Weight: 48 kg

DRUGS (2)
  1. METHOTREXATE [Suspect]
     Indication: CROHN'S DISEASE
     Route: 065
     Dates: start: 20070701
  2. REMICADE [Suspect]
     Indication: CROHN'S DISEASE
     Route: 042
     Dates: start: 20070701

REACTIONS (2)
  - ERYTHEMA NODOSUM [None]
  - CROHN'S DISEASE [None]
